FAERS Safety Report 6752154-X (Version None)
Quarter: 2010Q2

REPORT INFORMATION
  Report Type: 
  Country: None (occurrence: None)
  Receive Date: 20100601
  Receipt Date: 20100601
  Transmission Date: 20101027
  Serious: Yes (Hospitalization)
  Sender: FDA-Public Use
  Company Number: None

PATIENT
  Age: 79 Year
  Sex: Male
  Weight: 61.8 kg

DRUGS (1)
  1. ROSUVASTATIN [Suspect]
     Dosage: 10 MG EVERY DAY PO
     Route: 048
     Dates: start: 20100401, end: 20100427

REACTIONS (1)
  - PANCREATITIS [None]
